FAERS Safety Report 10758446 (Version 1)
Quarter: 2015Q1

REPORT INFORMATION
  Report Type: Spontaneous
  Country: GR (occurrence: GR)
  Receive Date: 20150203
  Receipt Date: 20150203
  Transmission Date: 20150721
  Serious: Yes (Death, Hospitalization, Other)
  Sender: FDA-Public Use
  Company Number: GR-ACTELION-A-CH2015-111630

PATIENT
  Age: 54 Year
  Sex: Female
  Weight: 61 kg

DRUGS (4)
  1. TREPROSTINIL [Concomitant]
     Active Substance: TREPROSTINIL
  2. TRACLEER [Suspect]
     Active Substance: BOSENTAN\BOSENTAN MONOHYDRATE
     Indication: PULMONARY ARTERIAL HYPERTENSION
     Dosage: 125 MG, BID
     Route: 048
     Dates: start: 2001, end: 20141230
  3. REVATIO [Suspect]
     Active Substance: SILDENAFIL CITRATE
     Indication: PULMONARY ARTERIAL HYPERTENSION
     Dosage: 20 MG, TID
     Route: 048
     Dates: start: 2004, end: 20141230
  4. VELETRI [Suspect]
     Active Substance: EPOPROSTENOL
     Indication: PULMONARY ARTERIAL HYPERTENSION
     Dosage: 35 NG/KG, PER MIN
     Route: 042
     Dates: start: 20141208, end: 20141230

REACTIONS (7)
  - Multi-organ failure [Fatal]
  - Pyrexia [Fatal]
  - Renal failure [Fatal]
  - Sepsis [Fatal]
  - C-reactive protein increased [Fatal]
  - Procalcitonin increased [Fatal]
  - White blood cell count increased [Fatal]

NARRATIVE: CASE EVENT DATE: 20141201
